FAERS Safety Report 6526872-2 (Version None)
Quarter: 2010Q1

REPORT INFORMATION
  Report Type: 
  Country: None (occurrence: None)
  Receive Date: 20100105
  Receipt Date: 20091224
  Transmission Date: 20100710
  Serious: Yes (Hospitalization)
  Sender: FDA-Public Use
  Company Number: PHHY2009JP14188

PATIENT
  Sex: Male

DRUGS (5)
  1. AMN107 AMN+CAP [Suspect]
     Indication: CHRONIC MYELOID LEUKAEMIA
     Dosage: 400 MG, DAILY
     Route: 048
     Dates: start: 20090408, end: 20090413
  2. NITROGLYCERIN [Concomitant]
     Route: 061
  3. HYDREA [Concomitant]
     Indication: CHRONIC MYELOID LEUKAEMIA
     Dosage: 500MG
     Route: 048
     Dates: start: 20080601, end: 20090407
  4. BLOPRESS [Concomitant]
     Dosage: 8MG
     Route: 048
  5. NORVASC [Concomitant]
     Dosage: 5 MG
     Route: 048

REACTIONS (4)
  - C-REACTIVE PROTEIN INCREASED [None]
  - CARDIAC FAILURE CONGESTIVE [None]
  - ORTHOPNOEA [None]
  - PLEURAL EFFUSION [None]
